FAERS Safety Report 4727271-6 (Version None)
Quarter: 2005Q3

REPORT INFORMATION
  Report Type: 
  Country: None (occurrence: None)
  Receive Date: 20050728
  Receipt Date: 20050725
  Transmission Date: 20060218
  Serious: Yes (Death)
  Sender: FDA-Public Use
  Company Number: RU-GLAXOSMITHKLINE-B0388917A

PATIENT
  Age: 16 Year
  Sex: Female
  Weight: 55 kg

DRUGS (5)
  1. LAMICTAL [Suspect]
     Indication: EPILEPSY
     Dosage: 25MG PER DAY
     Dates: start: 20050510, end: 20050519
  2. THIAMINE [Concomitant]
     Route: 030
     Dates: start: 20050512, end: 20050519
  3. MAGNESIUM SULFATE [Concomitant]
     Route: 030
     Dates: start: 20050512, end: 20050519
  4. EUPHYLLINE [Concomitant]
     Route: 042
     Dates: start: 20050512, end: 20050519
  5. CAVINTON [Concomitant]
     Dosage: 10MG PER DAY
     Route: 042
     Dates: start: 20050512, end: 20050519

REACTIONS (1)
  - SUDDEN DEATH [None]
